FAERS Safety Report 7200902-7 (Version None)
Quarter: 2010Q4

REPORT INFORMATION
  Report Type: 
  Country: None (occurrence: None)
  Receive Date: 20101228
  Receipt Date: 20101214
  Transmission Date: 20110411
  Serious: Yes (Hospitalization)
  Sender: FDA-Public Use
  Company Number: US-JNJFOC-20101208302

PATIENT
  Sex: Female
  Weight: 91.16 kg

DRUGS (12)
  1. IBUPROFEN [Suspect]
     Indication: ARTHRITIS
     Route: 048
  2. GLUCOTROL [Concomitant]
  3. CLONIDINE [Concomitant]
  4. LOTREL [Concomitant]
  5. ZYRTEC [Concomitant]
  6. FUROSEMIDE [Concomitant]
  7. CALCIUM [Concomitant]
  8. CENTRUM MULTIVITAMINS [Concomitant]
  9. NORVASC [Concomitant]
  10. BENAZEPRIL [Concomitant]
  11. METFORMIN [Concomitant]
  12. ALBUTEROL [Concomitant]

REACTIONS (2)
  - COLONIC POLYP [None]
  - GASTROINTESTINAL HAEMORRHAGE [None]
